FAERS Safety Report 8988936 (Version 1)
Quarter: 2012Q4

REPORT INFORMATION
  Report Type: Spontaneous
  Country: US (occurrence: None)
  Receive Date: 20121220
  Receipt Date: 20121220
  Transmission Date: 20130627
  Serious: Yes (Hospitalization)
  Sender: FDA-Public Use
  Company Number: 2012ST000766

PATIENT
  Age: 82 Year
  Sex: Female

DRUGS (1)
  1. MATULANE CAPSULES [Suspect]
     Indication: HODGKIN^S DISEASE
     Route: 048
     Dates: start: 20120919

REACTIONS (1)
  - Adverse event [None]
